FAERS Safety Report 5250320-6 (Version None)
Quarter: 2007Q1

REPORT INFORMATION
  Report Type: 
  Country: None (occurrence: None)
  Receive Date: 20070228
  Receipt Date: 20060426
  Transmission Date: 20070707
  Serious: No
  Sender: FDA-Public Use
  Company Number: US-GLAXOSMITHKLINE-A0599160A

PATIENT
  Age: 9 Year
  Sex: Female

DRUGS (3)
  1. LAMICTAL [Suspect]
     Dosage: .5TAB IN THE MORNING
     Route: 048
     Dates: start: 20060309
  2. RISPERDAL [Concomitant]
     Dosage: 2.5MG AT NIGHT
  3. CLONIDINE [Concomitant]
     Dosage: .45MG PER DAY

REACTIONS (1)
  - RASH [None]
